FAERS Safety Report 25890107 (Version 1)
Quarter: 2025Q4

REPORT INFORMATION
  Report Type: Spontaneous
  Country: EU (occurrence: EU)
  Receive Date: 20251007
  Receipt Date: 20251007
  Transmission Date: 20260118
  Serious: Yes (Hospitalization)
  Sender: RANBAXY
  Company Number: EU-MINISAL02-1044836

PATIENT
  Age: 21 Year
  Sex: Male

DRUGS (3)
  1. OLANZAPINE [Suspect]
     Active Substance: OLANZAPINE
     Indication: Mental disorder
     Dosage: 2 DOSAGE FORM, UNK
     Route: 048
     Dates: start: 20250607, end: 20250607
  2. XANAX [Suspect]
     Active Substance: ALPRAZOLAM
     Indication: Intentional overdose
     Dosage: 20 DOSAGE FORM, UNK
     Route: 048
     Dates: start: 20250607, end: 20250607
  3. XANAX [Suspect]
     Active Substance: ALPRAZOLAM
     Indication: Mental disorder

REACTIONS (4)
  - Somnolence [Not Recovered/Not Resolved]
  - Hypoventilation [Not Recovered/Not Resolved]
  - Intentional overdose [Not Recovered/Not Resolved]
  - Intentional product misuse [Not Recovered/Not Resolved]

NARRATIVE: CASE EVENT DATE: 20250607
